FAERS Safety Report 9542348 (Version 1)
Quarter: 2013Q3

REPORT INFORMATION
  Report Type: Spontaneous
  Country: IT (occurrence: None)
  Receive Date: 20130918
  Receipt Date: 20130918
  Transmission Date: 20140515
  Serious: Yes (Life-Threatening)
  Sender: FDA-Public Use
  Company Number: AUR-APL-2013-06342

PATIENT
  Age: 82 Year
  Sex: Female

DRUGS (9)
  1. ATENOLOL [Suspect]
     Indication: HYPERTENSION
     Route: 048
     Dates: start: 20110101, end: 20130530
  2. RYTMONORM [Suspect]
     Indication: ATRIAL FIBRILLATION
     Route: 048
     Dates: start: 20110101, end: 20130530
  3. ARIXTRA (FONDAPARINUX SODIUM) [Concomitant]
  4. ANTRA [Concomitant]
  5. TACHIDOL (PANADEINE CO) [Concomitant]
  6. RILUTEK (RILUZOLE) [Concomitant]
  7. ENALAPRIL [Concomitant]
  8. CITALOPRAM (CITALOPRAM) [Concomitant]
  9. ALPRAZOLAM (ALPRAZOLAM) [Concomitant]

REACTIONS (4)
  - Atrial fibrillation [None]
  - Malaise [None]
  - Bradyarrhythmia [None]
  - Oxygen saturation decreased [None]
